FAERS Safety Report 17936654 (Version 1)
Quarter: 2020Q2

REPORT INFORMATION
  Report Type: Spontaneous
  Country: US (occurrence: US)
  Receive Date: 20200624
  Receipt Date: 20200624
  Transmission Date: 20200714
  Serious: Yes (Hospitalization, Other)
  Sender: FDA-Public Use
  Company Number: US-BION-008794

PATIENT
  Age: 28 Year
  Sex: Male

DRUGS (1)
  1. LOPERAMIDE HYDROCHLORIDE. [Suspect]
     Active Substance: LOPERAMIDE HYDROCHLORIDE

REACTIONS (6)
  - Brugada syndrome [Unknown]
  - Ileus [Unknown]
  - Anxiety [Unknown]
  - Agitation [Unknown]
  - Withdrawal syndrome [Unknown]
  - Drug abuse [Unknown]
